FAERS Safety Report 6054960-6 (Version None)
Quarter: 2009Q1

REPORT INFORMATION
  Report Type: 
  Country: None (occurrence: None)
  Receive Date: 20090122
  Receipt Date: 20090106
  Transmission Date: 20090719
  Serious: Yes (Other)
  Sender: FDA-Public Use
  Company Number: 000147

PATIENT
  Age: 44 Year
  Sex: Female
  Weight: 62 kg

DRUGS (2)
  1. ALPROSTADIL [Suspect]
     Indication: SKIN NECROSIS
     Dosage: (10 ?G INTRAVENOUS))
     Route: 042
     Dates: start: 20040201, end: 20040101
  2. ASPIRIN [Concomitant]

REACTIONS (3)
  - CONDITION AGGRAVATED [None]
  - EXTREMITY NECROSIS [None]
  - ULCER [None]
